FAERS Safety Report 7605096-1 (Version None)
Quarter: 2011Q3

REPORT INFORMATION
  Report Type: 
  Country: None (occurrence: None)
  Receive Date: 20110713
  Receipt Date: 20100723
  Transmission Date: 20111222
  Serious: Yes (Hospitalization, Other)
  Sender: FDA-Public Use
  Company Number: US-BAYER-201040200NA

PATIENT
  Age: 77 Year
  Sex: Male
  Weight: 101.2 kg

DRUGS (13)
  1. TRASYLOL [Suspect]
     Dosage: 50 ML/HR
     Route: 042
     Dates: start: 20040921, end: 20040921
  2. CARTIA XT [Concomitant]
     Dosage: 120 MG, UNK
     Route: 048
     Dates: start: 20000910
  3. RED BLOOD CELLS [Concomitant]
     Dosage: 1145 ML, UNK
     Route: 042
     Dates: start: 20040921
  4. TRASYLOL [Suspect]
     Indication: CORONARY ARTERY BYPASS
     Dosage: 200 ML LOADING DOSE
     Route: 042
     Dates: start: 20040921, end: 20040921
  5. CAPTOPRIL [Concomitant]
     Dosage: 25 MG, UNK
     Route: 048
     Dates: start: 19990312
  6. FUROSEMIDE [Concomitant]
     Dosage: 40 MG, UNK
     Route: 048
     Dates: start: 19990326
  7. TRASYLOL [Suspect]
     Dosage: 200 ML PUMP PRIME
     Dates: start: 20040921, end: 20040921
  8. TRIAMTERENE [Concomitant]
     Dosage: 50 MG, UNK
     Route: 048
     Dates: start: 19990716
  9. ZOCOR [Concomitant]
     Dosage: 40 MG, UNK
     Route: 048
     Dates: start: 20000322
  10. SUFENTANIL CITRATE [Concomitant]
     Dosage: 175MCG
     Route: 042
     Dates: start: 20040921
  11. NICARDIPINE HCL [Concomitant]
     Dosage: 1.75 MG, UNK
     Route: 042
     Dates: start: 20040921
  12. LOSARTAN POTASSIUM [Concomitant]
     Dosage: 50 MG, UNK
     Route: 048
     Dates: start: 19990217
  13. MIDAZOLAM HCL [Concomitant]
     Dosage: 7.5 MG, UNK
     Route: 042
     Dates: start: 20040921

REACTIONS (14)
  - RENAL IMPAIRMENT [None]
  - RENAL INJURY [None]
  - PAIN [None]
  - INJURY [None]
  - ACUTE RESPIRATORY FAILURE [None]
  - ANXIETY [None]
  - FEAR [None]
  - CEREBROVASCULAR ACCIDENT [None]
  - RENAL TUBULAR NECROSIS [None]
  - EMOTIONAL DISTRESS [None]
  - CARDIAC FAILURE CONGESTIVE [None]
  - UNEVALUABLE EVENT [None]
  - RENAL FAILURE [None]
  - STRESS [None]
